FAERS Safety Report 9659668 (Version 1)
Quarter: 2013Q4

REPORT INFORMATION
  Report Type: Spontaneous
  Country: GB (occurrence: GB)
  Receive Date: 20131031
  Receipt Date: 20131031
  Transmission Date: 20140711
  Serious: Yes (Hospitalization, Other)
  Sender: FDA-Public Use
  Company Number: GB-JNJFOC-20131015548

PATIENT
  Age: 38 Year
  Sex: Male
  Weight: 81 kg

DRUGS (4)
  1. REMICADE [Suspect]
     Indication: CROHN^S DISEASE
     Route: 042
     Dates: start: 20090907
  2. CHOLESTAGEL [Concomitant]
     Route: 065
  3. CITALOPRAM [Concomitant]
     Route: 065
  4. MERCAPTOPURINE [Concomitant]
     Route: 065

REACTIONS (5)
  - Cerebral infarction [Recovered/Resolved]
  - Myocardial infarction [Recovered/Resolved]
  - Electrocardiogram ST segment elevation [Recovered/Resolved]
  - Small intestinal resection [Recovered/Resolved]
  - Anal infection [Unknown]
